FAERS Safety Report 4377526-2 (Version None)
Quarter: 2004Q2

REPORT INFORMATION
  Report Type: 
  Country: None (occurrence: None)
  Receive Date: 20040615
  Receipt Date: 20020528
  Transmission Date: 20050107
  Serious: Yes (Disabling)
  Sender: FDA-Public Use
  Company Number: US-MERCK-0205USA03295

PATIENT
  Age: 77 Year
  Sex: Female

DRUGS (4)
  1. [THERAPY UNSPECIFIED] [Concomitant]
     Indication: HYPERSENSITIVITY
     Route: 065
  2. FOSAMAX [Suspect]
     Indication: OSTEOPOROSIS
     Route: 048
     Dates: start: 20011201, end: 20021201
  3. FOSAMAX [Suspect]
     Route: 048
  4. ARMOUR THYROID TABLETS [Concomitant]
     Route: 065

REACTIONS (9)
  - ABDOMINAL DISCOMFORT [None]
  - DIZZINESS [None]
  - DRUG INEFFECTIVE [None]
  - HEADACHE [None]
  - LYMPHADENOPATHY [None]
  - MEDICATION ERROR [None]
  - OESOPHAGEAL PAIN [None]
  - ONYCHORRHEXIS [None]
  - THROAT IRRITATION [None]
